FAERS Safety Report 12219242 (Version 2)
Quarter: 2016Q2

REPORT INFORMATION
  Report Type: Spontaneous
  Country: US (occurrence: US)
  Receive Date: 20160329
  Receipt Date: 20160415
  Transmission Date: 20160815
  Serious: Yes (Other)
  Sender: FDA-Public Use
  Company Number: US-MDT-ADR-2016-00515

PATIENT
  Age: 65 Year
  Sex: Male

DRUGS (5)
  1. LIORESAL [Suspect]
     Active Substance: BACLOFEN
     Dosage: 289.8MCG/DAY
     Route: 037
  2. TOPICAL CREAM [Suspect]
     Active Substance: UNSPECIFIED INGREDIENT
     Route: 061
  3. VITAMIN D3 [Suspect]
     Active Substance: CHOLECALCIFEROL
  4. ZOCOR [Suspect]
     Active Substance: SIMVASTATIN
  5. FLOMAX [Suspect]
     Active Substance: TAMSULOSIN HYDROCHLORIDE

REACTIONS (6)
  - Medical device site pain [Unknown]
  - No therapeutic response [Unknown]
  - Medical device site discomfort [Unknown]
  - Pocket erosion [Unknown]
  - Medical device site discolouration [Unknown]
  - Medical device site erythema [Unknown]
